FAERS Safety Report 24251511 (Version 1)
Quarter: 2024Q3

REPORT INFORMATION
  Report Type: Spontaneous
  Country: DE (occurrence: DE)
  Receive Date: 20240826
  Receipt Date: 20240826
  Transmission Date: 20241016
  Serious: Yes (Other)
  Sender: GLAXOSMITHKLINE
  Company Number: DE-DCGMA-24203738

PATIENT

DRUGS (7)
  1. UMECLIDINIUM BROMIDE\VILANTEROL TRIFENATATE [Suspect]
     Active Substance: UMECLIDINIUM BROMIDE\VILANTEROL TRIFENATATE
     Indication: Chronic obstructive pulmonary disease
     Dosage: UNK UNK, QD
     Route: 055
     Dates: start: 20240413
  2. BEROTEC [Concomitant]
     Active Substance: FENOTEROL HYDROBROMIDE
     Indication: Chronic obstructive pulmonary disease
     Dosage: ASNECESSARY, B.B. CURRENTLY 1-2/D
     Route: 055
     Dates: start: 202404
  3. PREGABALIN [Concomitant]
     Active Substance: PREGABALIN
     Indication: Pain
     Dosage: UNK UNK, QD (75-0-100MG)
     Route: 048
  4. MIRTAZAPINE [Concomitant]
     Active Substance: MIRTAZAPINE
     Indication: Depression
     Dosage: UNK UNK, QD
     Route: 048
  5. IRBESARTAN/HCT [Concomitant]
     Indication: Hypertension
     Dosage: UNK UNK, QD (300/12.5)
     Route: 048
  6. CITALOPRAM [Concomitant]
     Active Substance: CITALOPRAM\CITALOPRAM HYDROBROMIDE
     Indication: Depression
     Dosage: UNK
     Route: 048
  7. OXYCODONE [Concomitant]
     Active Substance: OXYCODONE
     Indication: Pain
     Dosage: 1 DF, TID (20/10  1-1-1)
     Route: 048

REACTIONS (2)
  - Genital abscess [Recovered/Resolved]
  - Genital tract inflammation [Recovered/Resolved]

NARRATIVE: CASE EVENT DATE: 20240416
